FAERS Safety Report 10664445 (Version 3)
Quarter: 2015Q2

REPORT INFORMATION
  Report Type: Spontaneous
  Country: RU (occurrence: None)
  Receive Date: 20141217
  Receipt Date: 20150624
  Transmission Date: 20150821
  Serious: Yes (Other)
  Sender: FDA-Public Use
  Company Number: RU2014GSK023888

PATIENT
  Sex: Female

DRUGS (8)
  1. LAMIVUDINE (LAMIVUDINE) UNKNOWN [Suspect]
     Active Substance: LAMIVUDINE
     Indication: HIV INFECTION
     Dates: start: 201407, end: 201505
  2. ABACAVIR (ABACAVIR SULPHATE) UNKNOWN [Suspect]
     Active Substance: ABACAVIR
     Indication: HIV INFECTION
     Dates: start: 201505
  3. NEUROMULTIVIT (CYANOCOBALAMIN + PYRIDOXINE HYDROCHLORIDE + THIAMINE HYDROCHLORIDE) [Concomitant]
  4. TENOFOVIR (TENOFOVIR) UNKNOWN [Suspect]
     Active Substance: TENOFOVIR
     Indication: HIV INFECTION
     Dates: start: 201407, end: 201505
  5. INTELENCE [Suspect]
     Active Substance: ETRAVIRINE
     Indication: HIV INFECTION
     Dates: start: 201407, end: 201410
  6. ZIDOVUDINE (ZIDOVUDINE) UNKNOWN) [Suspect]
     Active Substance: ZIDOVUDINE
     Indication: PRODUCT USED FOR UNKNOWN INDICATION
     Dates: start: 201410
  7. KALETRA [Suspect]
     Active Substance: LOPINAVIR\RITONAVIR
     Indication: HIV INFECTION
     Dates: start: 201410
  8. ISONIAZID (ISONIAZID) [Suspect]
     Active Substance: ISONIAZID
     Indication: ANTIBIOTIC PROPHYLAXIS
     Dates: start: 201407, end: 201408

REACTIONS (14)
  - Muscle spasms [None]
  - Viral load increased [None]
  - Emotional disorder [None]
  - Drug ineffective [None]
  - Chills [None]
  - CD4 lymphocytes decreased [None]
  - Weight increased [None]
  - Osteochondrosis [None]
  - Dizziness [None]
  - Mental disorder [None]
  - Lymphadenopathy [None]
  - Somnolence [None]
  - Hypoaesthesia [None]
  - Pyrexia [None]

NARRATIVE: CASE EVENT DATE: 201407
